FAERS Safety Report 17734687 (Version 2)
Quarter: 2020Q2

REPORT INFORMATION
  Report Type: Spontaneous
  Country: FR (occurrence: FR)
  Receive Date: 20200501
  Receipt Date: 20200603
  Transmission Date: 20200714
  Serious: Yes (Death, Life-Threatening)
  Sender: FDA-Public Use
  Company Number: FR-MYLANLABS-2020M1042979

PATIENT
  Age: 65 Year
  Sex: Female
  Weight: 88 kg

DRUGS (8)
  1. JANUVIA [Suspect]
     Active Substance: SITAGLIPTIN PHOSPHATE
     Indication: DIABETES MELLITUS
     Dosage: UNK
     Route: 048
  2. BROMAZEPAM [Concomitant]
     Active Substance: BROMAZEPAM
     Dosage: SI BESOIN
  3. LOSARTAN. [Suspect]
     Active Substance: LOSARTAN
     Indication: HYPERTENSION
     Dosage: UNK
     Route: 048
  4. REPAGLINIDE. [Suspect]
     Active Substance: REPAGLINIDE
     Indication: DIABETES MELLITUS
     Dosage: UNK
     Route: 048
  5. PARACETAMOL [Concomitant]
     Active Substance: ACETAMINOPHEN
     Dosage: SI BESOIN
     Route: 048
  6. DICLOFENAC [Suspect]
     Active Substance: DICLOFENAC
     Indication: PRODUCT USED FOR UNKNOWN INDICATION
     Dosage: ? LA DEMANDE
     Route: 048
  7. TAMIFLU [Concomitant]
     Active Substance: OSELTAMIVIR PHOSPHATE
     Dosage: UNK
     Route: 048
     Dates: start: 20200303, end: 20200309
  8. ROXITHROMYCINE [Concomitant]
     Active Substance: ROXITHROMYCIN
     Dosage: UNK
     Dates: start: 20200303, end: 20200309

REACTIONS (3)
  - Lung disorder [Not Recovered/Not Resolved]
  - Condition aggravated [Fatal]
  - Coronavirus infection [Fatal]

NARRATIVE: CASE EVENT DATE: 20200302
